FAERS Safety Report 19856126 (Version 2)
Quarter: 2022Q4

REPORT INFORMATION
  Report Type: Spontaneous
  Country: DE (occurrence: DE)
  Receive Date: 20210920
  Receipt Date: 20221101
  Transmission Date: 20230113
  Serious: Yes (Hospitalization)
  Sender: FDA-Public Use
  Company Number: DE-ADRED-07142-01

PATIENT
  Age: 88 Year
  Sex: Female

DRUGS (10)
  1. SPIRONOLACTONE [Suspect]
     Active Substance: SPIRONOLACTONE
     Indication: Product used for unknown indication
     Dosage: 50 MG
     Route: 048
  2. LATANOPROST [Concomitant]
     Active Substance: LATANOPROST
     Indication: Product used for unknown indication
     Dosage: 1 DOSAGE FORMS DAILY; 0-0-0-1
     Route: 031
  3. BISOPROLOL [Concomitant]
     Active Substance: BISOPROLOL
     Indication: Product used for unknown indication
     Dosage: 5 MILLIGRAM DAILY;  1-0-0-0
     Route: 048
  4. MIANSERIN [Concomitant]
     Active Substance: MIANSERIN
     Indication: Product used for unknown indication
     Route: 048
  5. DORZOLAMIDE HYDROCHLORIDE\TIMOLOL MALEATE [Concomitant]
     Active Substance: DORZOLAMIDE HYDROCHLORIDE\TIMOLOL MALEATE
     Indication: Product used for unknown indication
     Dosage: 2 DOSAGE FORMS DAILY; 5|2, 1-0-1-0 , 20 MG/ML + 5MG/ML,
     Route: 031
  6. Melperon-CT [Concomitant]
     Indication: Product used for unknown indication
     Dosage: 25 | 5 MG / ML, IF NECESSARY , 25MG/5ML SOLUTION
     Route: 048
  7. ZOLPIDEM [Concomitant]
     Active Substance: ZOLPIDEM TARTRATE
     Indication: Product used for unknown indication
     Dosage: .5 DOSAGE FORMS DAILY; 10 MG, 0-0-0-0.5
     Route: 048
  8. LEVOTHYROXINE SODIUM [Concomitant]
     Active Substance: LEVOTHYROXINE SODIUM
     Indication: Product used for unknown indication
     Dosage: .75 DOSAGE FORMS DAILY; 100 MCG, 0.75-0-0-0
     Route: 048
  9. CANDESARTAN [Concomitant]
     Active Substance: CANDESARTAN
     Indication: Product used for unknown indication
     Dosage: 8 MG
     Route: 048
  10. Duloxetin-1A Pharma [Concomitant]
     Indication: Product used for unknown indication
     Dosage: 30 MILLIGRAM DAILY; 1-0-0-0
     Route: 048

REACTIONS (6)
  - Nausea [Unknown]
  - Abdominal pain [Unknown]
  - Psychomotor retardation [Unknown]
  - Product monitoring error [Unknown]
  - Hyponatraemia [Unknown]
  - Hyperkalaemia [Unknown]
